FAERS Safety Report 8476304-2 (Version None)
Quarter: 2012Q2

REPORT INFORMATION
  Report Type: 
  Country: None (occurrence: None)
  Receive Date: 20120619
  Receipt Date: 20120612
  Transmission Date: 20120825
  Serious: Yes (Life-Threatening, Hospitalization)
  Sender: FDA-Public Use
  Company Number: 2012SP031906

PATIENT
  Age: 26 Year
  Sex: Female

DRUGS (4)
  1. ATARAX [Suspect]
     Indication: PREMEDICATION
     Dosage: 100 MG;QD;PO
     Route: 048
     Dates: start: 20120514, end: 20120515
  2. ROCURONIUM BROMIDE [Suspect]
     Indication: INDUCTION OF ANAESTHESIA
     Dosage: 110 MG;IV
     Route: 042
     Dates: start: 20120515, end: 20120515
  3. SUFENTA PRESERVATIVE FREE [Suspect]
     Indication: INDUCTION OF ANAESTHESIA
     Dosage: 15 MCG;IV
     Route: 042
     Dates: start: 20120515, end: 20120515
  4. DIPRIVAN [Suspect]
     Indication: INDUCTION OF ANAESTHESIA
     Dosage: 200 MG;IV
     Route: 042
     Dates: start: 20120515, end: 20120515

REACTIONS (2)
  - BRONCHOSPASM [None]
  - RASH [None]
